FAERS Safety Report 13854485 (Version 2)
Quarter: 2019Q3

REPORT INFORMATION
  Report Type: Report from Study
  Country: JP (occurrence: JP)
  Receive Date: 20170809
  Receipt Date: 20190819
  Transmission Date: 20191004
  Serious: Yes (Hospitalization)
  Sender: FDA-Public Use
  Company Number: JP-B.I. PHARMACEUTICALS,INC./RIDGEFIELD-2017-BI-044358

PATIENT
  Age: 73 Year
  Sex: Male
  Weight: 49 kg

DRUGS (10)
  1. AVOLVE [Suspect]
     Active Substance: DUTASTERIDE
     Indication: PRODUCT USED FOR UNKNOWN INDICATION
     Route: 048
     Dates: end: 20151220
  2. TAMSULOSIN [Suspect]
     Active Substance: TAMSULOSIN
     Indication: BENIGN PROSTATIC HYPERPLASIA
     Route: 048
     Dates: end: 20160106
  3. FEBURIC [Suspect]
     Active Substance: FEBUXOSTAT
     Indication: PRODUCT USED FOR UNKNOWN INDICATION
     Route: 048
     Dates: end: 20151215
  4. BLOPRESS [Suspect]
     Active Substance: CANDESARTAN CILEXETIL
     Route: 048
     Dates: start: 20160120, end: 20170113
  5. BLOPRESS [Suspect]
     Active Substance: CANDESARTAN CILEXETIL
     Route: 048
     Dates: start: 20170114
  6. SAMSCA [Suspect]
     Active Substance: TOLVAPTAN
     Indication: CONGENITAL CYSTIC KIDNEY DISEASE
     Route: 048
     Dates: start: 20150610, end: 20151028
  7. TAMSULOSIN [Suspect]
     Active Substance: TAMSULOSIN
     Route: 048
     Dates: start: 20160203
  8. FEBURIC [Suspect]
     Active Substance: FEBUXOSTAT
     Route: 048
     Dates: start: 20160407
  9. BLOPRESS [Suspect]
     Active Substance: CANDESARTAN CILEXETIL
     Indication: PRODUCT USED FOR UNKNOWN INDICATION
     Route: 048
     Dates: end: 20151219
  10. AVOLVE [Suspect]
     Active Substance: DUTASTERIDE
     Route: 048
     Dates: start: 20160203

REACTIONS (5)
  - Alanine aminotransferase increased [Not Recovered/Not Resolved]
  - Alanine aminotransferase increased [Recovered/Resolved]
  - Gamma-glutamyltransferase increased [Recovered/Resolved]
  - Aspartate aminotransferase increased [Unknown]
  - Aspartate aminotransferase increased [Recovered/Resolved]

NARRATIVE: CASE EVENT DATE: 20151028
